FAERS Safety Report 21628536 (Version 1)
Quarter: 2022Q4

REPORT INFORMATION
  Report Type: Spontaneous
  Country: US (occurrence: US)
  Receive Date: 20221122
  Receipt Date: 20221122
  Transmission Date: 20230113
  Serious: No
  Sender: FDA-Public Use
  Company Number: US-CURIUM-2022000738

PATIENT
  Age: 65 Year
  Sex: Male
  Weight: 105.23 kg

DRUGS (17)
  1. TECHNETIUM TC-99M SODIUM PERTECHNETATE [Suspect]
     Active Substance: TECHNETIUM TC-99M SODIUM PERTECHNETATE
     Indication: Cardiac amyloidosis
     Route: 065
     Dates: start: 20220916, end: 20220916
  2. TECHNETIUM TC-99M SODIUM PERTECHNETATE [Suspect]
     Active Substance: TECHNETIUM TC-99M SODIUM PERTECHNETATE
     Indication: Cardiac amyloidosis
     Route: 065
     Dates: start: 20220919, end: 20220919
  3. PYP (Not Curium product) [Concomitant]
     Indication: Cardiac amyloidosis
     Route: 065
     Dates: start: 20220916, end: 20220916
  4. spironolactone (ALDACTONE) 25 mg [Concomitant]
     Indication: Product used for unknown indication
     Dosage: ONE TABLET
     Route: 048
     Dates: start: 20220914
  5. levothyroxine (SYNTHROID) 175 mcg [Concomitant]
     Indication: Product used for unknown indication
     Dosage: ONE TABLET
     Route: 048
     Dates: start: 20220807
  6. atorvastatin (LIPITOR) 80 mg tablet [Concomitant]
     Indication: Product used for unknown indication
     Dosage: ONE TABLET
     Route: 048
     Dates: start: 20220806
  7. losartan (COZAAR) 50 mg tablet [Concomitant]
     Indication: Product used for unknown indication
     Dosage: ONE TABLET
     Route: 048
     Dates: start: 20220806
  8. ferrous sulfate (IRON) 325 mg [Concomitant]
     Indication: Product used for unknown indication
     Dosage: ONE TABLET
     Route: 048
     Dates: start: 20220806
  9. metFORMIN-XR (GLUCOPHAGE XR) [Concomitant]
     Indication: Product used for unknown indication
     Dosage: 2 TABLETS
     Route: 048
     Dates: start: 20220629
  10. clopiDOGrel (PLAVIX) 75 mg tablet [Concomitant]
     Indication: Product used for unknown indication
     Dosage: ONE TABLET
     Route: 048
     Dates: start: 20220419
  11. nitroglycerin (NITROSTAT) 0.4 mg tablet [Concomitant]
     Indication: Product used for unknown indication
     Dosage: ONE TABLET
     Route: 065
     Dates: start: 20220419
  12. furosemide (LASIX) 40 mg tablet [Concomitant]
     Indication: Product used for unknown indication
     Dosage: ONE TABLET
     Route: 048
     Dates: start: 20220322
  13. HUMALOG KWIKPEN INSULIN 100u [Concomitant]
     Indication: Product used for unknown indication
     Dosage: 40 U
     Route: 051
     Dates: start: 20220212
  14. omeprazole DR (PRISOLEC) 20 mg [Concomitant]
     Indication: Product used for unknown indication
     Dosage: 1 CAPSULE
     Route: 048
     Dates: start: 20220207
  15. VITAMIN D2 1.250 mcg (50,000unit) [Concomitant]
     Indication: Product used for unknown indication
     Dosage: ONE CAPSULE
     Route: 048
     Dates: start: 20220111
  16. OZEMPIC 1 mg/dose (4 mg/3 mL) [Concomitant]
     Indication: Product used for unknown indication
     Dosage: 1 MG UNDER THE SKIN
     Route: 058
     Dates: start: 20211218
  17. FARXIGA 10 mg tablet [Concomitant]
     Indication: Product used for unknown indication
     Dosage: 10 MG
     Route: 048
     Dates: start: 20211216

REACTIONS (3)
  - Radioisotope scan abnormal [Recovered/Resolved]
  - Drug ineffective [Recovered/Resolved]
  - Radiation overdose [Recovered/Resolved]

NARRATIVE: CASE EVENT DATE: 20220916
